FAERS Safety Report 8614447-0 (Version None)
Quarter: 2012Q3

REPORT INFORMATION
  Report Type: 
  Country: None (occurrence: None)
  Receive Date: 20120823
  Receipt Date: 20120817
  Transmission Date: 20120928
  Serious: Yes (Other)
  Sender: FDA-Public Use
  Company Number: PHEH2012US014999

PATIENT
  Sex: Male
  Weight: 140.14 kg

DRUGS (3)
  1. BENICAR [Concomitant]
     Indication: HYPERTENSION
     Dosage: 1 DF, QD
     Route: 048
     Dates: start: 20090301, end: 20091101
  2. EXFORGE HCT [Concomitant]
     Indication: HYPERTENSION
     Dosage: 1 DF, QD
     Route: 048
     Dates: start: 20091101, end: 20111101
  3. VALTURNA [Suspect]
     Indication: HYPERTENSION
     Dosage: 1 DF (300/320 MG), QD
     Route: 048
     Dates: start: 20111101

REACTIONS (1)
  - HAEMATURIA [None]
